FAERS Safety Report 16725408 (Version 1)
Quarter: 2019Q4

REPORT INFORMATION
  Report Type: Spontaneous
  Country: US (occurrence: US)
  Receive Date: 20190820
  Receipt Date: 20190820
  Transmission Date: 20200122
  Serious: No
  Sender: FDA-Public Use
  Company Number: None

PATIENT
  Age: 65 Year

DRUGS (2)
  1. AKORN SODIUM CHLORIDE OPHTHALMIC OINTMENT 5% [Concomitant]
     Dates: start: 20090801, end: 20190814
  2. SODIUM CHLORIDE OPHTHALMIC OINTMENT 5% [Suspect]
     Active Substance: SODIUM CHLORIDE

REACTIONS (1)
  - Instillation site pain [None]

NARRATIVE: CASE EVENT DATE: 20190814
